FAERS Safety Report 4705583-X (Version None)
Quarter: 2005Q2

REPORT INFORMATION
  Report Type: 
  Country: None (occurrence: None)
  Receive Date: 20050629
  Receipt Date: 20040827
  Transmission Date: 20051028
  Serious: Yes (Death, Hospitalization, Other)
  Sender: FDA-Public Use
  Company Number: 200410741GDDC

PATIENT
  Age: 73 Year
  Sex: Female
  Weight: 72 kg

DRUGS (7)
  1. GEMCITABINE SOLUTION FOR INFUSION [Suspect]
     Indication: NON-SMALL CELL LUNG CANCER
     Dosage: 1900 MG/DAY IV
     Route: 042
     Dates: start: 20031008, end: 20031126
  2. GLUCAZIDE [Concomitant]
  3. METFORMIN [Concomitant]
  4. ENALAPRIL MALEATE [Concomitant]
  5. NIFEDIPINE [Concomitant]
  6. ASPIRIN [Concomitant]
  7. LEVOFLOXACIN [Concomitant]

REACTIONS (13)
  - BLOOD PRESSURE DECREASED [None]
  - BRONCHOPNEUMONIA [None]
  - HAEMOGLOBIN DECREASED [None]
  - HEART RATE INCREASED [None]
  - NAUSEA [None]
  - OXYGEN SATURATION DECREASED [None]
  - PCO2 DECREASED [None]
  - PLATELET COUNT DECREASED [None]
  - PNEUMONITIS [None]
  - PO2 DECREASED [None]
  - RESPIRATORY FAILURE [None]
  - VOMITING [None]
  - WHITE BLOOD CELL COUNT DECREASED [None]
